FAERS Safety Report 10977275 (Version 1)
Quarter: 2015Q1

REPORT INFORMATION
  Report Type: Spontaneous
  Country: US (occurrence: None)
  Receive Date: 20150331
  Receipt Date: 20150331
  Transmission Date: 20150721
  Serious: Yes (Hospitalization)
  Sender: FDA-Public Use
  Company Number: PR 6660

PATIENT
  Age: 51 Year
  Sex: Male
  Weight: 63 kg

DRUGS (3)
  1. COSOPT [Suspect]
     Active Substance: DORZOLAMIDE HYDROCHLORIDE\TIMOLOL MALEATE
     Indication: INTRAOCULAR PRESSURE TEST ABNORMAL
     Dosage: 1 DROP/EYE
     Route: 031
     Dates: start: 1997
  2. TRAVATAN (TRAVOPROST) [Concomitant]
  3. ALDACTONE [Concomitant]
     Active Substance: SPIRONOLACTONE

REACTIONS (7)
  - Fatigue [None]
  - Malabsorption [None]
  - Hyponatraemia [None]
  - Hypotension [None]
  - Hypokalaemia [None]
  - Drug interaction [None]
  - Angina pectoris [None]

NARRATIVE: CASE EVENT DATE: 1997
